FAERS Safety Report 19829584 (Version 1)
Quarter: 2021Q3

REPORT INFORMATION
  Report Type: Spontaneous
  Country: US (occurrence: US)
  Receive Date: 20210913
  Receipt Date: 20210913
  Transmission Date: 20211014
  Serious: No
  Sender: FDA-Public Use
  Company Number: None

PATIENT
  Age: 66 Year
  Sex: Male
  Weight: 100.24 kg

DRUGS (1)
  1. LISINOPRIL (LISINOPRIL 40MG TAB) [Suspect]
     Active Substance: LISINOPRIL
     Indication: HYPERTENSION
     Route: 048
     Dates: start: 20170819, end: 20210801

REACTIONS (8)
  - Swollen tongue [None]
  - Chills [None]
  - Oropharyngeal pain [None]
  - Angioedema [None]
  - Rhinorrhoea [None]
  - Pyrexia [None]
  - Respiratory symptom [None]
  - Nasopharyngitis [None]

NARRATIVE: CASE EVENT DATE: 20210731
